FAERS Safety Report 23924931 (Version 1)
Quarter: 2024Q2

REPORT INFORMATION
  Report Type: Spontaneous
  Country: US (occurrence: US)
  Receive Date: 20240531
  Receipt Date: 20240531
  Transmission Date: 20240716
  Serious: Yes (Other)
  Sender: FDA-Public Use
  Company Number: US-GILEAD-2024-0674650

PATIENT
  Age: 30 Year
  Sex: Male

DRUGS (2)
  1. BIKTARVY [Suspect]
     Active Substance: BICTEGRAVIR SODIUM\EMTRICITABINE\TENOFOVIR ALAFENAMIDE FUMARATE
     Indication: HIV infection
     Dosage: UNK
     Route: 065
  2. GENVOYA [Suspect]
     Active Substance: COBICISTAT\ELVITEGRAVIR\EMTRICITABINE\TENOFOVIR ALAFENAMIDE FUMARATE
     Indication: HIV infection
     Dosage: UNK
     Route: 065

REACTIONS (10)
  - Femur fracture [Unknown]
  - Osteonecrosis [Unknown]
  - Bone density decreased [Unknown]
  - Arthralgia [Unknown]
  - Musculoskeletal discomfort [Unknown]
  - Groin pain [Unknown]
  - Weight bearing difficulty [Unknown]
  - Fall [Unknown]
  - Muscle contracture [Unknown]
  - Pain in extremity [Unknown]
